FAERS Safety Report 4794263-0 (Version None)
Quarter: 2005Q4

REPORT INFORMATION
  Report Type: 
  Country: None (occurrence: None)
  Receive Date: 20051011
  Receipt Date: 20031212
  Transmission Date: 20060501
  Serious: Yes (Life-Threatening)
  Sender: FDA-Public Use
  Company Number: JP-GLAXOSMITHKLINE-B0317728A

PATIENT
  Age: 70 Year
  Sex: Male

DRUGS (14)
  1. VALACYCLOVIR HCL [Suspect]
     Indication: FACIAL NERVE DISORDER
     Dosage: 1000MG THREE TIMES PER DAY
     Route: 048
     Dates: start: 20031208, end: 20031209
  2. PREDNISOLONE ACETATE [Suspect]
     Route: 042
  3. VERAPAMIL HYDROCHLORIDE [Concomitant]
     Route: 065
  4. SCOPOLAMINE BUTYLBROMIDE [Concomitant]
     Route: 065
  5. TOUGHMAC E [Concomitant]
     Route: 048
  6. DIGESTIVE ENZYME PREPARATION [Concomitant]
     Route: 048
  7. MECOBALAMIN [Concomitant]
     Route: 065
  8. PENTAZOCINE HYDROCHLORIDE [Concomitant]
     Route: 048
  9. RILMAZAFONE HYDROCHLORIDE [Concomitant]
     Route: 048
  10. ADENOSINE TRIPHOSPHATE DISODIUM [Concomitant]
     Route: 048
  11. FAMOTIDINE [Concomitant]
     Route: 048
  12. DIMETICONE [Concomitant]
     Route: 048
  13. DIGOXIN [Concomitant]
     Route: 048
  14. ISOSORBIDE DINITRATE [Concomitant]
     Route: 065

REACTIONS (2)
  - DEPRESSED LEVEL OF CONSCIOUSNESS [None]
  - RESTLESSNESS [None]
